FAERS Safety Report 21131477 (Version 1)
Quarter: 2022Q3

REPORT INFORMATION
  Report Type: Spontaneous
  Country: GB (occurrence: None)
  Receive Date: 20220726
  Receipt Date: 20220726
  Transmission Date: 20221026
  Serious: Yes (Other)
  Sender: FDA-Public Use
  Company Number: GB-MHRA-MED-202206240925421230-LPCSF

PATIENT
  Age: 55 Year
  Sex: Female
  Weight: 79 kg

DRUGS (6)
  1. FLUOXETINE [Suspect]
     Active Substance: FLUOXETINE HYDROCHLORIDE
     Dosage: 20MG ONCE DAILY;
     Dates: start: 20220522, end: 20220613
  2. ATORVASTATIN. [Concomitant]
  3. CLONIDINE [Concomitant]
     Active Substance: CLONIDINE
  4. LANSOPRAZOLE [Concomitant]
     Active Substance: LANSOPRAZOLE
  5. OLANZAPINE [Concomitant]
     Active Substance: OLANZAPINE
  6. RIVAROXABAN. [Concomitant]

REACTIONS (2)
  - Illness [Recovered/Resolved]
  - Dizziness [Recovered/Resolved]

NARRATIVE: CASE EVENT DATE: 20220613
